FAERS Safety Report 21157673 (Version 1)
Quarter: 2022Q3

REPORT INFORMATION
  Report Type: Spontaneous
  Country: CN (occurrence: CN)
  Receive Date: 20220801
  Receipt Date: 20220801
  Transmission Date: 20221027
  Serious: Yes (Other)
  Sender: FDA-Public Use
  Company Number: None

PATIENT
  Age: 68 Year
  Sex: Male
  Weight: 65 kg

DRUGS (4)
  1. CYCLOPHOSPHAMIDE [Suspect]
     Active Substance: CYCLOPHOSPHAMIDE
     Indication: Chronic lymphocytic leukaemia
     Dosage: DOSAGE FORM: INJECTION, 250 MG, QD (DILUTED IN 0.9% SODIUM CHLORIDE 250 ML)
     Route: 041
     Dates: start: 20220620, end: 20220622
  2. SODIUM CHLORIDE [Suspect]
     Active Substance: SODIUM CHLORIDE
     Indication: Medication dilution
     Dosage: DOSAGE FORM: INJECTION; 250 ML, QD, (DILUTED WITH CYCLOPHOSPHAMIDE 250 MG)
     Route: 041
     Dates: start: 20220620, end: 20220622
  3. SODIUM CHLORIDE [Suspect]
     Active Substance: SODIUM CHLORIDE
     Dosage: DOSAGE FORM: INJECTION; 250 ML, QD, (DILUTED WITH FLUDARABINE PHOSPHATE 35 MG)
     Route: 041
     Dates: start: 20220620, end: 20220622
  4. FLUDARABINE PHOSPHATE [Suspect]
     Active Substance: FLUDARABINE PHOSPHATE
     Indication: Chronic lymphocytic leukaemia
     Dosage: 35 MG, QD, (DILUTED IN 0.9% SODIUM CHLORIDE 250 ML)
     Route: 041
     Dates: start: 20220620, end: 20220622

REACTIONS (1)
  - Myelosuppression [Recovering/Resolving]

NARRATIVE: CASE EVENT DATE: 20220629
